FAERS Safety Report 7777095-0 (Version None)
Quarter: 2011Q3

REPORT INFORMATION
  Report Type: 
  Country: None (occurrence: None)
  Receive Date: 20110926
  Receipt Date: 20110915
  Transmission Date: 20111222
  Serious: Yes (Hospitalization, Other)
  Sender: FDA-Public Use
  Company Number: US-JNJFOC-20110906509

PATIENT
  Age: 42 Year
  Sex: Male
  Weight: 121.56 kg

DRUGS (4)
  1. VELCADE [Suspect]
     Indication: MULTIPLE MYELOMA
     Dosage: DAYS 1, 8, 15, 22 ON 35 DAY CYCLE
     Route: 042
     Dates: start: 20110118, end: 20110720
  2. DECADRON [Suspect]
     Indication: MULTIPLE MYELOMA
     Dosage: IV ON DAY OF AND PO ON DAY AFTER VELCADE
     Route: 048
     Dates: start: 20110118, end: 20110720
  3. DECADRON [Suspect]
     Dosage: IV ON DAY OF AND PO ON DAY AFTER VELCADE
     Route: 042
     Dates: start: 20110118, end: 20110720
  4. DOXORUBICIN HCL [Suspect]
     Indication: MULTIPLE MYELOMA
     Route: 042
     Dates: start: 20110121, end: 20110629

REACTIONS (3)
  - ABDOMINAL PAIN UPPER [None]
  - PYREXIA [None]
  - CONSTIPATION [None]
